FAERS Safety Report 19245907 (Version 1)
Quarter: 2021Q2

REPORT INFORMATION
  Report Type: Spontaneous
  Country: US (occurrence: US)
  Receive Date: 20210511
  Receipt Date: 20210511
  Transmission Date: 20210717
  Serious: No
  Sender: FDA-Public Use
  Company Number: US-ASTRAZENECA-2021A345428

PATIENT
  Sex: Female
  Weight: 81.6 kg

DRUGS (5)
  1. MONTELUEKAST [Concomitant]
     Indication: MULTIPLE ALLERGIES
  2. SYMBICORT [Suspect]
     Active Substance: BUDESONIDE\FORMOTEROL FUMARATE DIHYDRATE
     Indication: ASTHMA
     Dosage: PUT BACK ON SYMBICORT BUT AT A LOWER DOSE UNKNOWN
     Route: 055
  3. SYMBICORT [Suspect]
     Active Substance: BUDESONIDE\FORMOTEROL FUMARATE DIHYDRATE
     Indication: ASTHMA
     Dosage: 80/4.5 MCG., 2 PUFFS TWICE A DAY
     Route: 055
     Dates: start: 202012
  4. LOSARTAN. [Concomitant]
     Active Substance: LOSARTAN
     Indication: HYPERTENSION
  5. ARMOURTHYROID [Concomitant]
     Indication: THYROID DISORDER

REACTIONS (3)
  - Product dose omission issue [Unknown]
  - Blood pressure increased [Recovered/Resolved]
  - Device malfunction [Unknown]
